FAERS Safety Report 7867828-7 (Version None)
Quarter: 2011Q4

REPORT INFORMATION
  Report Type: 
  Country: None (occurrence: None)
  Receive Date: 20111025
  Receipt Date: 20111011
  Transmission Date: 20120403
  Serious: Yes (Death, Hospitalization)
  Sender: FDA-Public Use
  Company Number: 1072619

PATIENT
  Age: 78 Year
  Sex: Male
  Weight: 82 kg

DRUGS (12)
  1. ACETAMINOPHEN [Concomitant]
  2. ROSUVASTATIN [Concomitant]
  3. DOMPERIDONE [Concomitant]
  4. MORPHINE [Concomitant]
  5. ONDANSETRON [Concomitant]
  6. DEXAMETHASONE [Concomitant]
  7. OXALIPLATIN [Suspect]
     Indication: COLORECTAL CANCER
     Dosage: 170 MG MILLIGRAM(S), 5 MONTH, INTRAVENOUS
     Route: 042
  8. TRAMADOL HCL [Concomitant]
  9. CAPECITABINE [Concomitant]
  10. CYCLIZINE [Concomitant]
  11. ENOXAPARIN [Concomitant]
  12. LOPERAMIDE HCL [Concomitant]

REACTIONS (4)
  - RESPIRATORY FAILURE [None]
  - PYREXIA [None]
  - TREATMENT FAILURE [None]
  - PULMONARY FIBROSIS [None]
